FAERS Safety Report 8750674 (Version 2)
Quarter: 2013Q1

REPORT INFORMATION
  Report Type: Spontaneous
  Country: US (occurrence: None)
  Receive Date: 20120813
  Receipt Date: 20121226
  Transmission Date: 20140127
  Serious: Yes (Disabling, Other)
  Sender: FDA-Public Use
  Company Number: ACO_31333_2012

PATIENT
  Age: 59 Year
  Sex: Female
  Weight: 56.7 kg

DRUGS (3)
  1. AMPYRA [Suspect]
     Indication: GAIT DISTURBANCE
     Dosage: 10MG BID, ORAL ; 10 MG, QD, ORAL ; 10 MG, QD
     Route: 048
     Dates: start: 201101
  2. MOBIC [Suspect]
     Indication: BACK DISORDER
     Dates: start: 201203, end: 20120729
  3. AVONEX [Concomitant]

REACTIONS (6)
  - Intervertebral disc disorder [None]
  - Sleep disorder [None]
  - Arthritis [None]
  - Hangover [None]
  - Gait disturbance [None]
  - Alcohol use [None]
